FAERS Safety Report 9312134 (Version 1)
Quarter: 2013Q2

REPORT INFORMATION
  Report Type: Spontaneous
  Country: AU (occurrence: None)
  Receive Date: 20130516
  Receipt Date: 20130516
  Transmission Date: 20140414
  Serious: Yes (Other)
  Sender: FDA-Public Use
  Company Number: 2012000307

PATIENT
  Age: 23 Year
  Sex: Female
  Weight: 78 kg

DRUGS (1)
  1. ACEON (PERINDOPRIL ERBUMINE) TABLET [Suspect]
     Dates: start: 20120427, end: 20120801

REACTIONS (2)
  - Hepatitis [None]
  - Cholelithiasis [None]
